FAERS Safety Report 21103937 (Version 2)
Quarter: 2022Q3

REPORT INFORMATION
  Report Type: Spontaneous
  Country: US (occurrence: None)
  Receive Date: 20220720
  Receipt Date: 20220728
  Transmission Date: 20221027
  Serious: No
  Sender: FDA-Public Use
  Company Number: 2022A259580

PATIENT
  Age: 75 Year
  Sex: Female

DRUGS (1)
  1. PRILOSEC OTC [Suspect]
     Active Substance: OMEPRAZOLE MAGNESIUM
     Dosage: 1 TABLET, 1 /DAY
     Route: 048

REACTIONS (5)
  - Skin laceration [Recovering/Resolving]
  - Skin haemorrhage [Recovering/Resolving]
  - Pain in extremity [Not Recovered/Not Resolved]
  - Product package associated injury [Unknown]
  - Product blister packaging issue [Unknown]

NARRATIVE: CASE EVENT DATE: 20220714
